FAERS Safety Report 13131508 (Version 1)
Quarter: 2017Q1

REPORT INFORMATION
  Report Type: Spontaneous
  Country: FR (occurrence: FR)
  Receive Date: 20170119
  Receipt Date: 20170119
  Transmission Date: 20170428
  Serious: Yes (Hospitalization)
  Sender: FDA-Public Use
  Company Number: FR-PFIZER INC-2017015593

PATIENT
  Age: 57 Year
  Sex: Male

DRUGS (1)
  1. IMETH [Suspect]
     Active Substance: METHOTREXATE SODIUM
     Indication: RHEUMATOID ARTHRITIS
     Dosage: 2.8571 MG (20 MG,1 IN 1 W)
     Route: 048
     Dates: start: 20150721, end: 201511

REACTIONS (5)
  - Interstitial lung disease [Recovered/Resolved]
  - Cardiomegaly [Unknown]
  - Disorientation [Unknown]
  - Superinfection [Unknown]
  - Fall [Unknown]

NARRATIVE: CASE EVENT DATE: 201511
